FAERS Safety Report 12632684 (Version 2)
Quarter: 2016Q3

REPORT INFORMATION
  Report Type: Spontaneous
  Country: US (occurrence: US)
  Receive Date: 20160808
  Receipt Date: 20160808
  Transmission Date: 20161109
  Serious: No
  Sender: FDA-Public Use
  Company Number: US-BEH-2015056507

PATIENT
  Sex: Female
  Weight: 53 kg

DRUGS (13)
  1. ASMANEX [Concomitant]
     Active Substance: MOMETASONE FUROATE
  2. FLUDROCORTISONE ACETATE. [Concomitant]
     Active Substance: FLUDROCORTISONE ACETATE
  3. ACETAMINOPHEN. [Concomitant]
     Active Substance: ACETAMINOPHEN
  4. ESTRADIOL TRANSDERMAL SYSTEM [Concomitant]
     Active Substance: ESTRADIOL
  5. CYTOMEL [Concomitant]
     Active Substance: LIOTHYRONINE SODIUM
  6. MULTIVITAMINS A B D E K ZN B COMPLEX [Concomitant]
  7. HIZENTRA [Suspect]
     Active Substance: HUMAN IMMUNOGLOBULIN G
     Indication: IMMUNODEFICIENCY COMMON VARIABLE
     Route: 058
  8. EPIPEN [Concomitant]
     Active Substance: EPINEPHRINE
  9. MIDODRINE [Concomitant]
     Active Substance: MIDODRINE
  10. PROGESTERONE. [Concomitant]
     Active Substance: PROGESTERONE
  11. PROBIOTIC + ACIDOPHILUS [Concomitant]
  12. DIPHENHYDRAMINE. [Concomitant]
     Active Substance: DIPHENHYDRAMINE
  13. PROAIR HFA [Concomitant]
     Active Substance: ALBUTEROL SULFATE

REACTIONS (2)
  - Infusion site swelling [Recovered/Resolved]
  - Infusion site pain [Recovered/Resolved]
